FAERS Safety Report 6106078-1 (Version None)
Quarter: 2009Q1

REPORT INFORMATION
  Report Type: 
  Country: None (occurrence: None)
  Receive Date: 20090306
  Receipt Date: 20090303
  Transmission Date: 20090719
  Serious: Yes (Hospitalization)
  Sender: FDA-Public Use
  Company Number: FR-WYE-G03245409

PATIENT
  Age: 75 Year
  Sex: Male
  Weight: 64 kg

DRUGS (4)
  1. TYGACIL [Suspect]
     Indication: PERITONITIS
     Dosage: 50 MG TOTAL DAILY
     Route: 042
     Dates: start: 20090226
  2. PERFALGAN [Concomitant]
     Indication: PAIN
     Route: 042
  3. MORPHINE [Concomitant]
     Indication: PAIN
     Dosage: UNKNOWN
     Route: 042
  4. TAZOCILLINE [Concomitant]
     Indication: PERITONITIS
     Route: 042
     Dates: start: 20090224

REACTIONS (1)
  - SMALL INTESTINAL OBSTRUCTION [None]
